FAERS Safety Report 16859346 (Version 1)
Quarter: 2019Q3

REPORT INFORMATION
  Report Type: Spontaneous
  Country: US (occurrence: US)
  Receive Date: 20190927
  Receipt Date: 20190927
  Transmission Date: 20191005
  Serious: Yes (Other)
  Sender: FDA-Public Use
  Company Number: US-ELI_LILLY_AND_COMPANY-US201909011216

PATIENT

DRUGS (1)
  1. EMGALITY [Suspect]
     Active Substance: GALCANEZUMAB-GNLM
     Indication: PRODUCT USED FOR UNKNOWN INDICATION
     Dosage: 120 MG, SINGLE
     Route: 065
     Dates: start: 20190914

REACTIONS (16)
  - Paraesthesia oral [Unknown]
  - Mental impairment [Unknown]
  - Constipation [Unknown]
  - Dizziness [Unknown]
  - Dyspnoea [Unknown]
  - Fatigue [Unknown]
  - Dyspnoea [Unknown]
  - Vomiting [Unknown]
  - Decreased appetite [Unknown]
  - Paraesthesia [Unknown]
  - Somnolence [Unknown]
  - Chest pain [Unknown]
  - Nausea [Unknown]
  - Lip swelling [Unknown]
  - Chest discomfort [Unknown]
  - Underdose [Unknown]

NARRATIVE: CASE EVENT DATE: 20190914
